FAERS Safety Report 8814262 (Version 2)
Quarter: 2012Q4

REPORT INFORMATION
  Report Type: 
  Country: SI (occurrence: SI)
  Receive Date: 20120928
  Receipt Date: 20121031
  Transmission Date: 20130627
  Serious: Yes (Hospitalization, Other)
  Sender: FDA-Public Use
  Company Number: SI-JNJFOC-20120910346

PATIENT
  Age: 57 Year
  Sex: Male

DRUGS (10)
  1. STELARA [Suspect]
     Indication: PSORIASIS
     Route: 058
     Dates: start: 20091022, end: 20110628
  2. GLIVEC [Suspect]
     Indication: CHRONIC MYELOID LEUKAEMIA
     Route: 048
     Dates: start: 20111001
  3. DICLOFENAC [Concomitant]
     Indication: PSORIATIC ARTHROPATHY
     Route: 048
  4. PANTOPRAZOL [Concomitant]
     Indication: PRODUCT USED FOR UNKNOWN INDICATION
     Route: 048
     Dates: start: 20120911
  5. CONET [Concomitant]
     Indication: PRODUCT USED FOR UNKNOWN INDICATION
     Route: 042
     Dates: start: 20120914
  6. FRAGMINE [Concomitant]
     Indication: PRODUCT USED FOR UNKNOWN INDICATION
     Route: 065
     Dates: start: 20120911, end: 20120919
  7. LACTULOSE SYRUP [Concomitant]
     Indication: PRODUCT USED FOR UNKNOWN INDICATION
     Dosage: administered in hospital
     Route: 048
  8. ANALGIN [Concomitant]
     Indication: PRODUCT USED FOR UNKNOWN INDICATION
     Route: 065
  9. ZALDIAR [Concomitant]
     Indication: PRODUCT USED FOR UNKNOWN INDICATION
     Route: 048
  10. GLUCOSE [Concomitant]
     Indication: PRODUCT USED FOR UNKNOWN INDICATION
     Dosage: 5% infusion
     Route: 042

REACTIONS (5)
  - Chronic myeloid leukaemia [Not Recovered/Not Resolved]
  - Hepatic steatosis [Unknown]
  - Hepatomegaly [Unknown]
  - Splenomegaly [Unknown]
  - Pancreatitis acute [Unknown]
